FAERS Safety Report 4630240-8 (Version None)
Quarter: 2005Q2

REPORT INFORMATION
  Report Type: 
  Country: None (occurrence: None)
  Receive Date: 20050405
  Receipt Date: 20050405
  Transmission Date: 20051028
  Serious: Yes (Hospitalization)
  Sender: FDA-Public Use
  Company Number: None

PATIENT
  Sex: Male

DRUGS (4)
  1. NEUPOGEN [Suspect]
     Indication: CHEMOTHERAPY
     Dosage: 1 PER DAY   INJECTION  SUBCUTANEOUS
     Route: 058
     Dates: start: 20050317, end: 20050322
  2. NEUPOGEN [Suspect]
     Indication: NEOPLASM MALIGNANT
     Dosage: 1 PER DAY   INJECTION  SUBCUTANEOUS
     Route: 058
     Dates: start: 20050317, end: 20050322
  3. TAXOTERE [Concomitant]
  4. CISPLATIN [Concomitant]

REACTIONS (3)
  - BACK PAIN [None]
  - BONE EROSION [None]
  - METASTASES TO SPINE [None]
